FAERS Safety Report 9400665 (Version 2)
Quarter: 2013Q3

REPORT INFORMATION
  Report Type: Spontaneous
  Country: US (occurrence: US)
  Receive Date: 20130715
  Receipt Date: 20130911
  Transmission Date: 20140515
  Serious: Yes (Other)
  Sender: FDA-Public Use
  Company Number: US-BAYER-2013-085253

PATIENT
  Sex: Female

DRUGS (1)
  1. MIRENA [Suspect]
     Dosage: 20 ?G/D, CONT
     Route: 015
     Dates: start: 20091208, end: 20130730

REACTIONS (9)
  - Device dislocation [Recovered/Resolved]
  - Device issue [None]
  - Abdominal pain lower [None]
  - Oligomenorrhoea [None]
  - Back pain [None]
  - Alopecia [None]
  - Procedural pain [None]
  - Device difficult to use [None]
  - Complication of device removal [None]
